FAERS Safety Report 25124021 (Version 2)
Quarter: 2025Q2

REPORT INFORMATION
  Report Type: Spontaneous
  Country: US (occurrence: US)
  Receive Date: 20250326
  Receipt Date: 20250415
  Transmission Date: 20250717
  Serious: No
  Sender: SANOFI AVENTIS
  Company Number: US-SA-2025SA084436

PATIENT
  Age: 49 Year
  Sex: Male

DRUGS (1)
  1. DUPIXENT [Suspect]
     Active Substance: DUPILUMAB
     Dates: start: 202503

REACTIONS (3)
  - Injection site pain [Unknown]
  - Rash [Unknown]
  - Syringe issue [Unknown]

NARRATIVE: CASE EVENT DATE: 20250301
